FAERS Safety Report 15624102 (Version 5)
Quarter: 2019Q2

REPORT INFORMATION
  Report Type: Spontaneous
  Country: DE (occurrence: DE)
  Receive Date: 20181116
  Receipt Date: 20190417
  Transmission Date: 20190711
  Serious: Yes (Other)
  Sender: FDA-Public Use
  Company Number: DE-AUROBINDO-AUR-APL-2018-055246

PATIENT

DRUGS (17)
  1. TILIDINE [Suspect]
     Active Substance: TILIDINE
     Dosage: 2 DOSAGE FORM, ONCE A DAY
     Route: 048
  2. DIGITOXIN [Concomitant]
     Active Substance: DIGITOXIN
     Dosage: 0.07 MILLIGRAM, ONCE A DAY (0.07MG, EVERY MORNING)
     Route: 065
  3. METAMIZOLE [Concomitant]
     Active Substance: METAMIZOLE
     Indication: PRODUCT USED FOR UNKNOWN INDICATION
     Dosage: 500 MG/ML, 30 DROPS AS NEEDED MAX. 90 DROPS/DAY
     Route: 065
  4. SPIRONOLACTONE. [Concomitant]
     Active Substance: SPIRONOLACTONE
     Indication: PRODUCT USED FOR UNKNOWN INDICATION
     Dosage: 50 MILLIGRAM, ONCE A DAY (EVERY MORNING)
     Route: 065
  5. TORASEMIDE [Suspect]
     Active Substance: TORSEMIDE
     Indication: PRODUCT USED FOR UNKNOWN INDICATION
     Dosage: 10 MILLIGRAM, ONCE A DAY (10 MG, EVERY MORNING)
     Route: 065
  6. CARVEDILOL. [Concomitant]
     Active Substance: CARVEDILOL
     Dosage: 6.5 MILLIGRAM, ONCE A DAY (EVERY MORNING AND EVENING)
     Route: 065
  7. TILIDINE [Suspect]
     Active Substance: TILIDINE
     Indication: ARTHRALGIA
     Dosage: UNK, 50 MG/4 MG TWICE A DAY (EVERY MORNING AND EVENING)
     Route: 065
  8. OXAZEPAM. [Suspect]
     Active Substance: OXAZEPAM
     Indication: SLEEP DISORDER
     Dosage: 10 MILLIGRAM, ONCE A DAY (EVERY NIGHT)
     Route: 065
  9. DIGITOXIN [Concomitant]
     Active Substance: DIGITOXIN
     Indication: PRODUCT USED FOR UNKNOWN INDICATION
     Dosage: 0.14 MILLIGRAM, ONCE A DAY
     Route: 065
  10. CARVEDILOL. [Concomitant]
     Active Substance: CARVEDILOL
     Dosage: 6.25 MILLIGRAM, ONCE A DAY (EVERY MORNING AND EVENING)
     Route: 065
  11. MIRTAZAPINE FILM-COATED TABLET [Suspect]
     Active Substance: MIRTAZAPINE
     Indication: DEPRESSION
     Dosage: 15 MILLIGRAM, ONCE A DAY (EVERY EVENING)
     Route: 065
  12. DULOXETINE. [Suspect]
     Active Substance: DULOXETINE
     Indication: DEPRESSION
     Dosage: 30 MILLIGRAM, ONCE A DAY (EVERY MORNING)
     Route: 065
  13. TILIDINE [Suspect]
     Active Substance: TILIDINE
     Indication: BACK PAIN
     Dosage: 1 DOSAGE FORM, TWO TIMES A DAY
     Route: 048
  14. DICLOFENAC [Suspect]
     Active Substance: DICLOFENAC
     Indication: PRODUCT USED FOR UNKNOWN INDICATION
     Dosage: 75 MILLIGRAM, ONCE A DAY, EXTEND RELEASE 75 MG, EVERY MORNING
     Route: 065
  15. RAMIPRIL. [Suspect]
     Active Substance: RAMIPRIL
     Indication: CARDIAC FAILURE
     Dosage: 5 MILLIGRAM, ONCE A DAY (EVERY MORNING)
     Route: 065
  16. PANTOPRAZOLE [Concomitant]
     Active Substance: PANTOPRAZOLE
     Indication: PROPHYLAXIS
     Dosage: 20 MILLIGRAM, ONCE A DAY (20 MG, EVERY MORNING)
     Route: 065
  17. CARVEDILOL. [Concomitant]
     Active Substance: CARVEDILOL
     Indication: CARDIAC FAILURE
     Dosage: 12.5 MILLIGRAM, ONCE A DAY
     Route: 065

REACTIONS (3)
  - Contraindicated product administered [Unknown]
  - Renal impairment [Unknown]
  - Drug interaction [Unknown]
